FAERS Safety Report 5517758-0 (Version None)
Quarter: 2007Q4

REPORT INFORMATION
  Report Type: 
  Country: None (occurrence: None)
  Receive Date: 20071113
  Receipt Date: 20071031
  Transmission Date: 20080405
  Serious: Yes (Hospitalization)
  Sender: FDA-Public Use
  Company Number: GXKR2007US09411

PATIENT
  Age: 26 Year
  Sex: Female

DRUGS (5)
  1. RIFAMPICIN [Suspect]
     Indication: TUBERCULOSIS
     Dosage: 600 MG/DAY, ORAL
     Route: 048
  2. ISONIAZID [Concomitant]
  3. PYRAZINAMIDE [Concomitant]
  4. ETHAMBUTOL HYDROCHLORIDE [Concomitant]
  5. PYRIDOXINE (PYRIDOXINE) [Concomitant]

REACTIONS (6)
  - BILE DUCT STENOSIS [None]
  - BILE DUCT STENT INSERTION [None]
  - BILIARY SPHINCTEROTOMY [None]
  - DYSPEPSIA [None]
  - HEPATITIS [None]
  - PANCREATITIS [None]
